FAERS Safety Report 7874531 (Version 2)
Quarter: 2013Q1

REPORT INFORMATION
  Report Type: Spontaneous
  Country: US (occurrence: US)
  Receive Date: 20110328
  Receipt Date: 20130218
  Transmission Date: 20140127
  Serious: Yes (Other)
  Sender: FDA-Public Use
  Company Number: US-ASTRAZENECA-2011SE10468

PATIENT
  Age: 65 Year
  Sex: Female
  Weight: 72.6 kg

DRUGS (17)
  1. SEROQUEL [Suspect]
     Indication: BIPOLAR DISORDER
     Route: 048
  2. SEROQUEL [Suspect]
     Indication: BIPOLAR DISORDER
     Route: 048
  3. SEROQUEL [Suspect]
     Indication: BIPOLAR DISORDER
     Dosage: VARIED FROM 400 TO 600 DAILY
     Route: 048
  4. SEROQUEL [Suspect]
     Indication: BIPOLAR DISORDER
     Route: 048
     Dates: start: 199909
  5. SEROQUEL [Suspect]
     Indication: BIPOLAR DISORDER
     Route: 048
  6. NEXIUM [Suspect]
     Route: 048
  7. CRESTOR [Concomitant]
     Indication: HYPERCHOLESTEROLAEMIA
     Route: 048
  8. PROPANOL [Concomitant]
     Indication: TREMOR
     Route: 065
  9. SIMVASTATIN [Concomitant]
     Route: 065
  10. ABILIFY [Concomitant]
     Indication: MOOD SWINGS
     Route: 065
     Dates: start: 201002
  11. ARICEPT [Concomitant]
     Route: 065
  12. PROZAC [Concomitant]
     Indication: DEPRESSION
     Route: 065
  13. LEVOTHYROXINE [Concomitant]
     Route: 065
  14. LISINOPRIL [Concomitant]
     Route: 065
  15. DEPAKOTE [Concomitant]
     Indication: BIPOLAR DISORDER
     Route: 065
     Dates: start: 1999
  16. RANITIDINE [Concomitant]
  17. L-THYROXINE [Concomitant]

REACTIONS (8)
  - Ischaemic stroke [Recovering/Resolving]
  - Parkinson^s disease [Recovering/Resolving]
  - Transient ischaemic attack [Recovering/Resolving]
  - Confusional state [Recovered/Resolved]
  - Delirium [Recovered/Resolved]
  - Panic disorder [Unknown]
  - Tremor [Unknown]
  - Drug dose omission [Unknown]
